FAERS Safety Report 8444141-0 (Version None)
Quarter: 2012Q2

REPORT INFORMATION
  Report Type: 
  Country: None (occurrence: None)
  Receive Date: 20120611
  Receipt Date: 20120117
  Transmission Date: 20120825
  Serious: Yes (Other)
  Sender: FDA-Public Use
  Company Number: PI-06541

PATIENT
  Sex: Male

DRUGS (1)
  1. CHLORAPREP [Suspect]
     Indication: PREOPERATIVE CARE
     Dosage: 26ML, ONCE, TOPICAL
     Route: 061
     Dates: start: 20120106

REACTIONS (5)
  - BLISTER [None]
  - APPLICATION SITE ERYTHEMA [None]
  - NERVE INJURY [None]
  - INCISION SITE BLISTER [None]
  - APPLICATION SITE PRURITUS [None]
